FAERS Safety Report 4626223-4 (Version None)
Quarter: 2005Q2

REPORT INFORMATION
  Report Type: 
  Country: None (occurrence: None)
  Receive Date: 20050331
  Receipt Date: 20040614
  Transmission Date: 20051028
  Serious: Yes (Other)
  Sender: FDA-Public Use
  Company Number: 200412920BCC

PATIENT
  Age: 79 Year
  Sex: Male
  Weight: 77.1115 kg

DRUGS (5)
  1. ALEVE [Suspect]
     Indication: PAIN IN EXTREMITY
     Dosage: 220 MG, ONCE, ORAL
     Route: 048
     Dates: start: 20040612
  2. ASPIRIN [Suspect]
  3. PRILOSEC [Concomitant]
  4. HYDROCHLOROTHIAZIDE [Concomitant]
  5. TRILEPTAL [Concomitant]

REACTIONS (1)
  - HAEMATOCHEZIA [None]
